FAERS Safety Report 7465195-4 (Version None)
Quarter: 2011Q2

REPORT INFORMATION
  Report Type: 
  Country: None (occurrence: None)
  Receive Date: 20110509
  Receipt Date: 20110425
  Transmission Date: 20111010
  Serious: Yes (Other)
  Sender: FDA-Public Use
  Company Number: PHHY2011JP10640

PATIENT
  Sex: Male

DRUGS (2)
  1. TEKTURNA HCT [Suspect]
     Indication: HYPERTENSION
     Dosage: 150 MG, DAILY
     Route: 048
     Dates: start: 20101026, end: 20101029
  2. ADALAT [Concomitant]

REACTIONS (4)
  - DRUG HYPERSENSITIVITY [None]
  - RASH [None]
  - PRURITUS GENERALISED [None]
  - GENERALISED ERYTHEMA [None]
